FAERS Safety Report 14367585 (Version 2)
Quarter: 2018Q1

REPORT INFORMATION
  Report Type: Spontaneous
  Country: US (occurrence: US)
  Receive Date: 20180109
  Receipt Date: 20180223
  Transmission Date: 20180509
  Serious: Yes (Hospitalization, Other)
  Sender: FDA-Public Use
  Company Number: US-GLAXOSMITHKLINE-US2018001115

PATIENT
  Sex: Male
  Weight: 99.1 kg

DRUGS (19)
  1. ADVAIR DISKUS [Suspect]
     Active Substance: FLUTICASONE PROPIONATE\SALMETEROL XINAFOATE
     Indication: CHRONIC OBSTRUCTIVE PULMONARY DISEASE
     Dosage: 1 PUFF(S), BID
     Route: 055
  2. ADVAIR DISKUS [Suspect]
     Active Substance: FLUTICASONE PROPIONATE\SALMETEROL XINAFOATE
     Indication: BRONCHIECTASIS
  3. MINERAL OIL. [Concomitant]
     Active Substance: MINERAL OIL
  4. KETOCONAZOLE TOPICAL CREAM [Concomitant]
     Active Substance: KETOCONAZOLE
  5. ASPIRIN. [Concomitant]
     Active Substance: ASPIRIN
  6. OXYGEN. [Concomitant]
     Active Substance: OXYGEN
  7. ANORO ELLIPTA [Suspect]
     Active Substance: UMECLIDINIUM BROMIDE\VILANTEROL TRIFENATATE
     Indication: CHRONIC OBSTRUCTIVE PULMONARY DISEASE
     Dosage: 1 PUFF(S), QD
     Route: 055
  8. PROAIR HFA [Concomitant]
     Active Substance: ALBUTEROL SULFATE
  9. ALBUTEROL SULFATE NEBULIZER [Concomitant]
  10. AMOXICILLIN. [Concomitant]
     Active Substance: AMOXICILLIN
  11. CARVEDILOL. [Concomitant]
     Active Substance: CARVEDILOL
  12. DULOXETINE. [Concomitant]
     Active Substance: DULOXETINE
  13. LATANOPROST. [Concomitant]
     Active Substance: LATANOPROST
  14. VITAMIN D3 [Concomitant]
     Active Substance: CHOLECALCIFEROL
  15. BUMETANIDE. [Concomitant]
     Active Substance: BUMETANIDE
  16. NAPROXEN. [Concomitant]
     Active Substance: NAPROXEN
  17. SIMVASTATIN. [Concomitant]
     Active Substance: SIMVASTATIN
  18. ADVAIR DISKUS [Suspect]
     Active Substance: FLUTICASONE PROPIONATE\SALMETEROL XINAFOATE
     Indication: EMPHYSEMA
  19. NITROGLYCERIN. [Concomitant]
     Active Substance: NITROGLYCERIN

REACTIONS (9)
  - Heart valve replacement [Unknown]
  - Chest discomfort [Unknown]
  - Cardiac valve disease [Unknown]
  - Catheterisation cardiac [Unknown]
  - Dyspnoea [Unknown]
  - Pneumonia [Recovered/Resolved]
  - Arthritis infective [Unknown]
  - Disease progression [Unknown]
  - Drug ineffective [Unknown]

NARRATIVE: CASE EVENT DATE: 2013
